FAERS Safety Report 6090708-7 (Version None)
Quarter: 2009Q1

REPORT INFORMATION
  Report Type: 
  Country: None (occurrence: None)
  Receive Date: 20090224
  Receipt Date: 20090213
  Transmission Date: 20090719
  Serious: No
  Sender: FDA-Public Use
  Company Number: US-ABBOTT-09P-163-0500011-00

PATIENT
  Sex: Female
  Weight: 88.53 kg

DRUGS (15)
  1. SIMCOR [Suspect]
     Indication: BLOOD CHOLESTEROL INCREASED
     Dosage: 500-20 DAILY AT BEDTIME
     Dates: start: 20081001, end: 20090126
  2. GABAPENTIN [Concomitant]
     Indication: DRUG USE FOR UNKNOWN INDICATION
  3. EFFEXOR [Concomitant]
     Indication: DRUG USE FOR UNKNOWN INDICATION
  4. ZANTAC [Concomitant]
     Indication: DRUG USE FOR UNKNOWN INDICATION
  5. LORAZEPAM [Concomitant]
     Indication: ANXIETY
  6. ASPIRIN [Concomitant]
     Indication: DRUG USE FOR UNKNOWN INDICATION
  7. BUSPAR [Concomitant]
     Indication: ANXIETY
  8. ONE-A-DAY MVT WITH ZINC + CA [Concomitant]
     Indication: DRUG USE FOR UNKNOWN INDICATION
  9. NEURONTIN [Concomitant]
     Indication: MOOD SWINGS
  10. NEURONTIN [Concomitant]
     Indication: FIBROMYALGIA
  11. ASPIRIN [Concomitant]
     Indication: FAMILIAL RISK FACTOR
  12. EFFEXOR XR [Concomitant]
     Indication: DEPRESSION
     Dosage: 75MG AND 150MG DAILY
  13. RANITIDINE [Concomitant]
     Indication: GASTROOESOPHAGEAL REFLUX DISEASE
  14. WOMEN'S DAILY VITAMINS [Concomitant]
     Indication: FIBROMYALGIA
  15. CALCIUM W/VITAMIN D [Concomitant]
     Indication: VITAMIN SUPPLEMENTATION

REACTIONS (3)
  - ERYTHEMA [None]
  - FLUSHING [None]
  - PALPITATIONS [None]
